FAERS Safety Report 8470752-2 (Version None)
Quarter: 2012Q2

REPORT INFORMATION
  Report Type: 
  Country: None (occurrence: None)
  Receive Date: 20120627
  Receipt Date: 20120619
  Transmission Date: 20120825
  Serious: Yes (Hospitalization)
  Sender: FDA-Public Use
  Company Number: US-BAYER-2012-062457

PATIENT
  Age: 43 Year
  Sex: Female
  Weight: 104.63 kg

DRUGS (4)
  1. YASMIN [Suspect]
     Dosage: UNK
  2. CLARITIN [Concomitant]
     Dosage: UNK UNK, PRN
     Route: 048
     Dates: start: 20090619
  3. IRON TABLETS [Concomitant]
     Dosage: UNK
     Route: 048
     Dates: start: 20090619
  4. YAZ [Suspect]
     Indication: ENDOMETRIOSIS
     Dosage: UNK

REACTIONS (2)
  - DEEP VEIN THROMBOSIS [None]
  - PULMONARY EMBOLISM [None]
